FAERS Safety Report 5486676-9 (Version None)
Quarter: 2007Q4

REPORT INFORMATION
  Report Type: 
  Country: None (occurrence: None)
  Receive Date: 20071016
  Receipt Date: 20071005
  Transmission Date: 20080405
  Serious: Yes (Hospitalization, Other)
  Sender: FDA-Public Use
  Company Number: PHBS2007JP11011

PATIENT
  Age: 10 Year
  Sex: Female

DRUGS (3)
  1. NEORAL [Suspect]
     Indication: NEPHROTIC SYNDROME
     Route: 048
  2. STEROIDS NOS [Suspect]
     Indication: NEPHROTIC SYNDROME
     Route: 065
  3. ADRENAL HORMONE PREPARATION [Concomitant]
     Route: 048

REACTIONS (6)
  - BODY HEIGHT BELOW NORMAL [None]
  - FOCAL GLOMERULOSCLEROSIS [None]
  - OSTEONECROSIS [None]
  - PROTEINURIA [None]
  - RENAL FAILURE ACUTE [None]
  - REVERSIBLE POSTERIOR LEUKOENCEPHALOPATHY SYNDROME [None]
